FAERS Safety Report 10074652 (Version 1)
Quarter: 2014Q2

REPORT INFORMATION
  Report Type: Spontaneous
  Country: US (occurrence: US)
  Receive Date: 20140414
  Receipt Date: 20140414
  Transmission Date: 20141212
  Serious: Yes (Death, Hospitalization, Other)
  Sender: FDA-Public Use
  Company Number: US-ROCHE-1382182

PATIENT
  Age: 44 Year
  Sex: Male

DRUGS (6)
  1. AVASTIN [Suspect]
     Indication: PANCREATIC CARCINOMA METASTATIC
     Route: 065
  2. ETOPOSIDE [Concomitant]
  3. FOLINIC ACID [Concomitant]
  4. 5-FU [Concomitant]
  5. OXALIPLATIN [Concomitant]
  6. CISPLATIN [Concomitant]

REACTIONS (3)
  - Death [Fatal]
  - Myocardial infarction [Unknown]
  - Coronary artery disease [Unknown]
